FAERS Safety Report 18499121 (Version 4)
Quarter: 2020Q4

REPORT INFORMATION
  Report Type: Spontaneous
  Country: CH (occurrence: CH)
  Receive Date: 20201113
  Receipt Date: 20201208
  Transmission Date: 20210114
  Serious: Yes (Death, Hospitalization, Other)
  Sender: FDA-Public Use
  Company Number: CH-ROCHE-2708116

PATIENT
  Age: 62 Year
  Sex: Female
  Weight: 67 kg

DRUGS (15)
  1. TECENTRIQ [Suspect]
     Active Substance: ATEZOLIZUMAB
     Indication: METASTATIC BRONCHIAL CARCINOMA
     Route: 041
     Dates: start: 201912, end: 20200210
  2. ASPIRIN CARDIO [Concomitant]
     Active Substance: ASPIRIN
     Dosage: DOSE -100 MG/DAY
     Route: 048
     Dates: start: 202006
  3. SERESTA [Concomitant]
     Active Substance: OXAZEPAM
     Dosage: DOSE-15 MG/DAY
     Route: 065
     Dates: start: 202006
  4. PRIVIGEN [Concomitant]
     Active Substance: HUMAN IMMUNOGLOBULIN G
     Dosage: 30 G/D
     Dates: start: 20200219, end: 20200223
  5. ZYLORIC [Concomitant]
     Active Substance: ALLOPURINOL
     Dosage: DOSE-300 MG/DAY
     Route: 048
     Dates: start: 202006
  6. LYRICA [Concomitant]
     Active Substance: PREGABALIN
     Route: 065
     Dates: start: 202006
  7. LYRICA [Concomitant]
     Active Substance: PREGABALIN
     Dates: start: 202006
  8. SERESTA [Concomitant]
     Active Substance: OXAZEPAM
     Dates: start: 202006
  9. ZYLORIC [Concomitant]
     Active Substance: ALLOPURINOL
  10. ASPIRIN CARDIO [Concomitant]
     Active Substance: ASPIRIN
     Route: 048
     Dates: start: 202006
  11. TECENTRIQ [Suspect]
     Active Substance: ATEZOLIZUMAB
     Indication: BRONCHIAL CARCINOMA
     Route: 041
     Dates: start: 20191218, end: 20200108
  12. SOLU-MEDROL [Concomitant]
     Active Substance: METHYLPREDNISOLONE SODIUM SUCCINATE
     Dosage: 1 G/D
     Route: 042
     Dates: start: 20200217, end: 20200221
  13. CO-AMOXI [Concomitant]
     Active Substance: AMOXICILLIN\CLAVULANATE POTASSIUM
     Route: 042
     Dates: start: 20200604, end: 20200610
  14. PRIVIGEN [Concomitant]
     Active Substance: HUMAN IMMUNOGLOBULIN G
     Dosage: 30 G/D
     Dates: start: 20200605, end: 20200609
  15. METOPROLOL. [Concomitant]
     Active Substance: METOPROLOL
     Route: 048

REACTIONS (11)
  - Ileus paralytic [Recovered/Resolved]
  - Dysphagia [Unknown]
  - Cough [Unknown]
  - Anaemia [Unknown]
  - Blood pressure decreased [Unknown]
  - Gaze palsy [Unknown]
  - Guillain-Barre syndrome [Fatal]
  - Nystagmus [Unknown]
  - Dyspnoea [Unknown]
  - Pneumonia aspiration [Fatal]
  - Muscular weakness [Unknown]

NARRATIVE: CASE EVENT DATE: 202002
